FAERS Safety Report 6409981-8 (Version None)
Quarter: 2009Q4

REPORT INFORMATION
  Report Type: 
  Country: None (occurrence: None)
  Receive Date: 20091022
  Receipt Date: 20090921
  Transmission Date: 20100525
  Serious: No
  Sender: FDA-Public Use
  Company Number: US-BAYER-200928262NA

PATIENT
  Age: 19 Year
  Sex: Female
  Weight: 95 kg

DRUGS (2)
  1. MIRENA [Suspect]
     Indication: CONTRACEPTION
     Dosage: CONTINUOUS
     Route: 015
     Dates: start: 20080111
  2. XOPENEX [Concomitant]

REACTIONS (5)
  - ABDOMINAL PAIN [None]
  - BACK PAIN [None]
  - HYPOMENORRHOEA [None]
  - MEDICAL DEVICE COMPLICATION [None]
  - PREGNANCY TEST POSITIVE [None]
